FAERS Safety Report 7731831-8 (Version None)
Quarter: 2011Q3

REPORT INFORMATION
  Report Type: 
  Country: None (occurrence: None)
  Receive Date: 20110906
  Receipt Date: 20110824
  Transmission Date: 20111222
  Serious: Yes (Death, Hospitalization)
  Sender: FDA-Public Use
  Company Number: CH-ROCHE-679103

PATIENT
  Age: 80 Year
  Sex: Female

DRUGS (2)
  1. CAPECITABINE [Suspect]
     Dosage: FOR 14 DAYS
     Route: 065
  2. BRIVUDINE [Interacting]
     Indication: HERPES ZOSTER
     Route: 065

REACTIONS (5)
  - THROMBOCYTOPENIA [None]
  - SEPTIC SHOCK [None]
  - STEVENS-JOHNSON SYNDROME [None]
  - DRUG INTERACTION [None]
  - LEUKOPENIA [None]
